FAERS Safety Report 24574513 (Version 1)
Quarter: 2024Q4

REPORT INFORMATION
  Report Type: Spontaneous
  Country: GB (occurrence: GB)
  Receive Date: 20241104
  Receipt Date: 20241104
  Transmission Date: 20250114
  Serious: Yes (Disabling)
  Sender: AUROBINDO
  Company Number: GB-MHRA-TPP28530167C6153531YC1729497368599

PATIENT
  Age: 34 Year
  Sex: Female
  Weight: 70 kg

DRUGS (3)
  1. CLARITHROMYCIN [Suspect]
     Active Substance: CLARITHROMYCIN
     Indication: Ill-defined disorder
     Dosage: 500 MILLIGRAM, TWO TIMES A DAY
     Route: 065
     Dates: start: 20241017
  2. DOXYCYCLINE [Concomitant]
     Active Substance: DOXYCYCLINE
     Indication: Ill-defined disorder
     Dosage: TWO NOW THEN ONE DAILY
     Route: 065
     Dates: start: 20240726
  3. EPINEPHRINE BITARTRATE [Concomitant]
     Active Substance: EPINEPHRINE BITARTRATE
     Indication: Ill-defined disorder
     Dosage: UNK, AS DIRECTED
     Route: 065
     Dates: start: 20240726

REACTIONS (1)
  - Illness [Recovered/Resolved]
